FAERS Safety Report 13966694 (Version 4)
Quarter: 2018Q1

REPORT INFORMATION
  Report Type: Spontaneous
  Country: NO (occurrence: NO)
  Receive Date: 20170914
  Receipt Date: 20180109
  Transmission Date: 20180508
  Serious: Yes (Other)
  Sender: FDA-Public Use
  Company Number: NO-AMGEN-NORSP2017135221

PATIENT
  Age: 64 Year
  Sex: Female

DRUGS (1)
  1. ENBREL [Suspect]
     Active Substance: ETANERCEPT
     Indication: RHEUMATIC DISORDER
     Dosage: 25 MG, 1 X WEEKLY
     Route: 065
     Dates: start: 20170821

REACTIONS (13)
  - Injection site erythema [Recovered/Resolved]
  - Nausea [Recovered/Resolved]
  - Injection site pain [Recovered/Resolved]
  - Injection site irritation [Recovered/Resolved]
  - Weight decreased [Unknown]
  - Diarrhoea [Recovered/Resolved]
  - Mucous stools [Recovered/Resolved]
  - Faeces discoloured [Recovered/Resolved]
  - Fatigue [Not Recovered/Not Resolved]
  - Pyelitis [Recovering/Resolving]
  - Abdominal pain upper [Recovered/Resolved]
  - Product use in unapproved indication [Unknown]
  - Malaise [Unknown]

NARRATIVE: CASE EVENT DATE: 20170821
